FAERS Safety Report 4489391-3 (Version None)
Quarter: 2004Q4

REPORT INFORMATION
  Report Type: 
  Country: None (occurrence: None)
  Receive Date: 20041101
  Receipt Date: 20041019
  Transmission Date: 20050328
  Serious: Yes (Hospitalization, Other)
  Sender: FDA-Public Use
  Company Number: US-ABBOTT-04P-163-0278029-00

PATIENT
  Age: 32 Year
  Sex: Male

DRUGS (2)
  1. VICODIN [Suspect]
     Indication: BACK PAIN
     Route: 048
  2. ACETAMINOPHEN W/ CODEINE [Suspect]
     Indication: DRUG USE FOR UNKNOWN INDICATION

REACTIONS (16)
  - ANURIA [None]
  - ATRIAL FIBRILLATION [None]
  - BLOOD CREATININE INCREASED [None]
  - BLOOD FIBRINOGEN INCREASED [None]
  - EPISTAXIS [None]
  - FIBRIN DEGRADATION PRODUCTS INCREASED [None]
  - HAEMORRHAGE [None]
  - HEPATIC FAILURE [None]
  - HYPOTENSION [None]
  - LIVER TRANSPLANT [None]
  - METABOLIC ACIDOSIS [None]
  - MOUTH HAEMORRHAGE [None]
  - OVERDOSE [None]
  - PUNCTURE SITE HAEMORRHAGE [None]
  - THERAPY NON-RESPONDER [None]
  - UNRESPONSIVE TO PAIN STIMULI [None]
